FAERS Safety Report 8236330-5 (Version None)
Quarter: 2012Q1

REPORT INFORMATION
  Report Type: 
  Country: None (occurrence: None)
  Receive Date: 20120327
  Receipt Date: 20120316
  Transmission Date: 20120608
  Serious: Yes (Other)
  Sender: FDA-Public Use
  Company Number: US-JNJFOC-20120308458

PATIENT
  Sex: Female
  Weight: 53.52 kg

DRUGS (2)
  1. METHOTREXATE [Concomitant]
     Dosage: IN CONJUCTION WITH INFLIXIMAB
     Route: 065
  2. REMICADE [Suspect]
     Indication: PSORIATIC ARTHROPATHY
     Dosage: 3 VIALS SOLUTIONS
     Route: 042

REACTIONS (1)
  - ADVERSE EVENT [None]
